FAERS Safety Report 6213199-1 (Version None)
Quarter: 2009Q2

REPORT INFORMATION
  Report Type: 
  Country: None (occurrence: None)
  Receive Date: 20090602
  Receipt Date: 20090602
  Transmission Date: 20091009
  Serious: Yes (Death)
  Sender: FDA-Public Use
  Company Number: None

PATIENT
  Age: 30 Year
  Sex: Female

DRUGS (2)
  1. SULFAMETHOXAZOLE AND TRIMETHOPRIM [Suspect]
     Indication: STAPHYLOCOCCAL INFECTION
     Dosage: DOUBLE STRENGTH TABLETS X2 TWICE A DAY PO
     Route: 048
  2. AMOXICILLIN [Suspect]
     Indication: STAPHYLOCOCCAL INFECTION
     Dosage: 500 MG TID PO
     Route: 048

REACTIONS (1)
  - STEVENS-JOHNSON SYNDROME [None]
